FAERS Safety Report 5168821-8 (Version None)
Quarter: 2006Q4

REPORT INFORMATION
  Report Type: 
  Country: None (occurrence: None)
  Receive Date: 20061201
  Receipt Date: 20061119
  Transmission Date: 20070319
  Serious: Yes (Hospitalization)
  Sender: FDA-Public Use
  Company Number: 2006143652

PATIENT
  Age: 11 Month
  Sex: Male
  Weight: 10.4327 kg

DRUGS (2)
  1. NEOSPORIN [Suspect]
     Indication: SCRATCH
     Dosage: ONCE, TOPICAL
     Route: 061
     Dates: start: 20061117, end: 20061117
  2. ACETAMINOPHEN [Concomitant]

REACTIONS (3)
  - LYMPHADENITIS [None]
  - PYREXIA [None]
  - SKIN INFECTION [None]
